FAERS Safety Report 9855082 (Version 1)
Quarter: 2014Q1

REPORT INFORMATION
  Report Type: Report from Study
  Country: DE (occurrence: DE)
  Receive Date: 20140130
  Receipt Date: 20140130
  Transmission Date: 20141002
  Serious: Yes (Hospitalization)
  Sender: FDA-Public Use
  Company Number: DE-ROCHE-1341905

PATIENT
  Age: 85 Year
  Sex: Female

DRUGS (1)
  1. TOCILIZUMAB [Suspect]
     Indication: RHEUMATOID ARTHRITIS
     Route: 065

REACTIONS (1)
  - Pulmonary embolism [Recovered/Resolved]
